FAERS Safety Report 26020049 (Version 1)
Quarter: 2025Q4

REPORT INFORMATION
  Report Type: Spontaneous
  Country: US (occurrence: US)
  Receive Date: 20251110
  Receipt Date: 20251110
  Transmission Date: 20260118
  Serious: No
  Sender: GALPHARM INTERNATIONAL
  Company Number: US-PERRIGO-25US003277

PATIENT
  Age: 66 Year
  Sex: Male
  Weight: 54.422 kg

DRUGS (7)
  1. POLYETHYLENE GLYCOL 3350 [Suspect]
     Active Substance: POLYETHYLENE GLYCOL 3350
     Indication: Constipation
     Dosage: 17 G, QD
     Route: 048
     Dates: start: 202407, end: 202407
  2. POLYETHYLENE GLYCOL 3350 [Suspect]
     Active Substance: POLYETHYLENE GLYCOL 3350
     Dosage: 17 G LESS 1 TSP, QD
     Route: 048
     Dates: start: 202407, end: 202407
  3. POLYETHYLENE GLYCOL 3350 [Suspect]
     Active Substance: POLYETHYLENE GLYCOL 3350
     Dosage: 17 G, QHS
     Route: 048
     Dates: start: 20250304, end: 20250305
  4. POLYETHYLENE GLYCOL 3350 [Suspect]
     Active Substance: POLYETHYLENE GLYCOL 3350
     Dosage: 17 G LESS 1 TSP, QD
     Route: 048
     Dates: start: 20250306, end: 20250307
  5. POLYETHYLENE GLYCOL 3350 [Suspect]
     Active Substance: POLYETHYLENE GLYCOL 3350
     Dosage: 17 G LESS 2 TSP, QD
     Route: 048
     Dates: start: 20250308, end: 20250309
  6. PANTOPRAZOLE [Concomitant]
     Active Substance: PANTOPRAZOLE
     Indication: Eosinophilic oesophagitis
     Dosage: 20 MG, BID
     Route: 065
     Dates: start: 202502
  7. DUPIXENT [Concomitant]
     Active Substance: DUPILUMAB
     Indication: Eosinophilic oesophagitis
     Dosage: UNK, MONTHLY
     Route: 065
     Dates: start: 202309, end: 20250227

REACTIONS (4)
  - Faecal volume decreased [Recovered/Resolved]
  - Diarrhoea [Recovered/Resolved]
  - Drug ineffective [Unknown]
  - Underdose [Unknown]

NARRATIVE: CASE EVENT DATE: 20240701
